FAERS Safety Report 24894540 (Version 2)
Quarter: 2025Q1

REPORT INFORMATION
  Report Type: Spontaneous
  Country: JP (occurrence: JP)
  Receive Date: 20250128
  Receipt Date: 20250212
  Transmission Date: 20250409
  Serious: Yes (Other)
  Sender: BAYER HEALTHCARE PHARMACEUTICALS INC.
  Company Number: JP-BAYER-2024A172849

PATIENT
  Age: 8 Decade
  Sex: Male

DRUGS (2)
  1. KERENDIA [Suspect]
     Active Substance: FINERENONE
     Indication: Diabetic nephropathy
     Dosage: DAILY DOSE 10 MG
     Dates: start: 20230705, end: 20230802
  2. PREDONINE [Suspect]
     Active Substance: PREDNISOLONE
     Indication: Collagen disorder
     Dosage: DAILY DOSE 10 MG
     Dates: start: 20230720

REACTIONS (2)
  - Diabetes mellitus [Recovered/Resolved]
  - Hyperkalaemia [Recovered/Resolved]

NARRATIVE: CASE EVENT DATE: 20230705
